FAERS Safety Report 4750884-2 (Version None)
Quarter: 2005Q3

REPORT INFORMATION
  Report Type: 
  Country: None (occurrence: None)
  Receive Date: 20050818
  Receipt Date: 20050808
  Transmission Date: 20060218
  Serious: Yes (Other)
  Sender: FDA-Public Use
  Company Number: 2005113087

PATIENT
  Age: 44 Year
  Sex: Female
  Weight: 72.5755 kg

DRUGS (3)
  1. DOSTINEX [Suspect]
     Indication: PITUITARY TUMOUR BENIGN
     Dosage: 0.5 MG (0.5 MG, DAILY  INTERVAL  BI-WEEKLY), ORAL
     Route: 048
     Dates: start: 20050401
  2. MOTRIN [Concomitant]
  3. NEXIUM [Concomitant]

REACTIONS (3)
  - DRUG DOSE OMISSION [None]
  - FOOT FRACTURE [None]
  - IMPAIRED HEALING [None]
